FAERS Safety Report 22047684 (Version 1)
Quarter: 2023Q1

REPORT INFORMATION
  Report Type: Report from Study
  Country: CA (occurrence: CA)
  Receive Date: 20230301
  Receipt Date: 20230301
  Transmission Date: 20230417
  Serious: Yes (Hospitalization, Other)
  Sender: FDA-Public Use
  Company Number: CA-ABBVIE-4296854

PATIENT
  Age: 66 Year
  Sex: Female

DRUGS (1)
  1. HUMIRA [Suspect]
     Active Substance: ADALIMUMAB
     Indication: Crohn^s disease
     Route: 058
     Dates: start: 20131118

REACTIONS (10)
  - Fall [Unknown]
  - Scaphoid abdomen [Unknown]
  - Gastrointestinal sounds abnormal [Unknown]
  - Frequent bowel movements [Unknown]
  - Infrequent bowel movements [Unknown]
  - Flatulence [Unknown]
  - Hypophagia [Unknown]
  - Crohn^s disease [Recovering/Resolving]
  - Abdominal distension [Unknown]
  - Pulmonary arterial hypertension [Unknown]

NARRATIVE: CASE EVENT DATE: 20230101
